FAERS Safety Report 8305686-7 (Version None)
Quarter: 2012Q1

REPORT INFORMATION
  Report Type: 
  Country: None (occurrence: None)
  Receive Date: 20120326
  Receipt Date: 20111228
  Transmission Date: 20120608
  Serious: Yes (Other)
  Sender: FDA-Public Use
  Company Number: PHEH2011US010835

PATIENT
  Age: 83 Year
  Sex: Female
  Weight: 63.6 kg

DRUGS (1)
  1. TASIGNA [Suspect]
     Indication: CHRONIC MYELOID LEUKAEMIA
     Dosage: 300 MG, BID, ORAL
     Route: 048
     Dates: start: 20111124, end: 20111127

REACTIONS (3)
  - VOMITING [None]
  - NAUSEA [None]
  - RETCHING [None]
